FAERS Safety Report 9155198 (Version 1)
Quarter: 2013Q1

REPORT INFORMATION
  Report Type: Spontaneous
  Country: US (occurrence: None)
  Receive Date: 20130206
  Receipt Date: 20130206
  Transmission Date: 20140127
  Serious: Yes (Hospitalization, Other)
  Sender: FDA-Public Use
  Company Number: HA13-021-AE

PATIENT
  Age: 13 Year
  Sex: Male

DRUGS (1)
  1. SMZ / TMP [Suspect]
     Route: 048

REACTIONS (3)
  - Brain oedema [None]
  - Convulsion [None]
  - Coma [None]
